FAERS Safety Report 9637788 (Version 1)
Quarter: 2013Q4

REPORT INFORMATION
  Report Type: Spontaneous
  Country: GB (occurrence: None)
  Receive Date: 20131018
  Receipt Date: 20131018
  Transmission Date: 20140711
  Serious: Yes (Other)
  Sender: FDA-Public Use
  Company Number: AUR-APL-2013-08568

PATIENT
  Age: 39 Year
  Sex: Female

DRUGS (1)
  1. CITALOPRAM(CITALOPRAM) [Suspect]
     Indication: PREMENSTRUAL DYSPHORIC DISORDER
     Route: 048
     Dates: start: 20130925

REACTIONS (1)
  - Premenstrual dysphoric disorder [None]
